FAERS Safety Report 5868372-9 (Version None)
Quarter: 2008Q3

REPORT INFORMATION
  Report Type: 
  Country: None (occurrence: None)
  Receive Date: 20080902
  Receipt Date: 20080902
  Transmission Date: 20090109
  Serious: Yes (Death)
  Sender: FDA-Public Use
  Company Number: None

PATIENT
  Age: 19 Year
  Sex: Female
  Weight: 49.8957 kg

DRUGS (1)
  1. COLISTIMETHATE SODIUM [Suspect]
     Indication: ILL-DEFINED DISORDER
     Dosage: 4ML -75MG- COLISTIMETHATE ONCE DAILY INHAL 2-3 WKS TIME
     Route: 055

REACTIONS (3)
  - DYSPNOEA [None]
  - MULTI-ORGAN FAILURE [None]
  - WRONG TECHNIQUE IN DRUG USAGE PROCESS [None]
